FAERS Safety Report 5319122-6 (Version None)
Quarter: 2007Q2

REPORT INFORMATION
  Report Type: 
  Country: None (occurrence: None)
  Receive Date: 20070508
  Receipt Date: 20070502
  Transmission Date: 20071010
  Serious: Yes (Other)
  Sender: FDA-Public Use
  Company Number: D0052938A

PATIENT
  Age: 57 Year
  Sex: Female
  Weight: 96 kg

DRUGS (8)
  1. AVANDIA [Suspect]
     Dosage: 4MG PER DAY
     Route: 048
     Dates: start: 20060401
  2. METOPROLOL SUCCINATE [Concomitant]
     Route: 048
  3. FLUOXETINE [Concomitant]
     Dosage: 20MG UNKNOWN
     Route: 048
  4. GLUCOPHAGE [Concomitant]
     Route: 048
  5. GLIMEPIRIDE [Concomitant]
     Route: 048
  6. METFORMIN HCL [Concomitant]
     Route: 048
  7. SIMVASTATIN [Concomitant]
     Route: 048
  8. DICLAC RETARD [Concomitant]
     Dosage: 75MG UNKNOWN
     Route: 048

REACTIONS (1)
  - RADIUS FRACTURE [None]
